FAERS Safety Report 13245388 (Version 4)
Quarter: 2017Q2

REPORT INFORMATION
  Report Type: Spontaneous
  Country: CN (occurrence: CN)
  Receive Date: 20170217
  Receipt Date: 20170516
  Transmission Date: 20170830
  Serious: No
  Sender: FDA-Public Use
  Company Number: CN-GLAXOSMITHKLINE-CN2017GSK018687

PATIENT
  Weight: 25 kg

DRUGS (3)
  1. AZITHROMYCIN POWDER [Suspect]
     Active Substance: AZITHROMYCIN
     Indication: ASTHMA
     Dosage: UNK UNK, TID
  2. SINGULAIR [Suspect]
     Active Substance: MONTELUKAST SODIUM
     Indication: ASTHMA
     Dosage: UNK
  3. SERETIDE [Suspect]
     Active Substance: FLUTICASONE PROPIONATE\SALMETEROL XINAFOATE
     Indication: ASTHMA
     Dosage: 1 PUFF(S), BID
     Route: 055
     Dates: start: 20170204

REACTIONS (6)
  - Drug ineffective [Not Recovered/Not Resolved]
  - Pyrexia [Recovered/Resolved]
  - Viral upper respiratory tract infection [Recovered/Resolved]
  - Productive cough [Recovered/Resolved]
  - Wrong technique in product usage process [Unknown]
  - Cough [Recovered/Resolved]
